FAERS Safety Report 25825058 (Version 1)
Quarter: 2025Q3

REPORT INFORMATION
  Report Type: Spontaneous
  Country: US (occurrence: US)
  Receive Date: 20250919
  Receipt Date: 20250919
  Transmission Date: 20251021
  Serious: Yes (Other)
  Sender: MERCK SHARP & DOHME LLC
  Company Number: US-009507513-2328251

PATIENT
  Sex: Male

DRUGS (2)
  1. KEYTRUDA [Suspect]
     Active Substance: PEMBROLIZUMAB
     Indication: Brain neoplasm
     Route: 065
     Dates: start: 202309
  2. XGEVA [Suspect]
     Active Substance: DENOSUMAB
     Indication: Brain neoplasm
     Route: 065

REACTIONS (5)
  - Malignant neoplasm progression [Unknown]
  - Laparoscopic surgery [Unknown]
  - Back pain [Unknown]
  - Radiotherapy [Unknown]
  - Swelling [Unknown]

NARRATIVE: CASE EVENT DATE: 20250101
